FAERS Safety Report 19081509 (Version 3)
Quarter: 2022Q2

REPORT INFORMATION
  Report Type: Report from Study
  Country: FR (occurrence: None)
  Receive Date: 20210401
  Receipt Date: 20220505
  Transmission Date: 20220720
  Serious: Yes (Other)
  Sender: FDA-Public Use
  Company Number: FR-ROCHE-2797865

PATIENT
  Age: 76 Year
  Sex: Male
  Weight: 86 kg

DRUGS (7)
  1. ATEZOLIZUMAB [Suspect]
     Active Substance: ATEZOLIZUMAB
     Indication: Lymphoma
     Dosage: ON 26/NOV/2020, HE RECEIVED LAST DOSE OF ATEZOLIZUMAB?ON DAY 2 OF EACH 21-DAY CYCLE DURING 18 MONTHS
     Route: 041
     Dates: start: 20200207
  2. OBINUTUZUMAB [Suspect]
     Active Substance: OBINUTUZUMAB
     Indication: Lymphoma
     Dosage: ON 02/JUL/2020, HE RECEIVED LAST DOSE OF OBINUTUZUMAB?ON DAY 1, DAY 8 AND DAY 15 OF CYCLE 1 AND EACH
     Route: 042
     Dates: start: 20200206
  3. VENETOCLAX [Suspect]
     Active Substance: VENETOCLAX
     Indication: Lymphoma
     Dosage: ON 30/NOV/2020, HE RECEIVED LAST DOSE OF VENETOCLAX?FROM DAY 8 OF CYCLE 1, EVERY DAY DURING 18 MONTH
     Route: 065
     Dates: start: 20200213
  4. BACTRIM [Concomitant]
     Active Substance: SULFAMETHOXAZOLE\TRIMETHOPRIM
     Dates: start: 2012
  5. VALACYCLOVIR [Concomitant]
     Active Substance: VALACYCLOVIR HYDROCHLORIDE
     Dates: start: 2012
  6. ESOMEPRAZOLE [Concomitant]
     Active Substance: ESOMEPRAZOLE
     Dates: start: 2012
  7. NEBIVOLOL [Concomitant]
     Active Substance: NEBIVOLOL
     Dates: start: 2004

REACTIONS (1)
  - Squamous cell carcinoma [Recovered/Resolved]

NARRATIVE: CASE EVENT DATE: 20201130
